FAERS Safety Report 8241587 (Version 2)
Quarter: 2013Q1

REPORT INFORMATION
  Report Type: Spontaneous
  Country: US (occurrence: US)
  Receive Date: 20111111
  Receipt Date: 20130225
  Transmission Date: 20140127
  Serious: Yes (Hospitalization, Other)
  Sender: FDA-Public Use
  Company Number: US-ROCHE-1010278

PATIENT
  Age: 34 None
  Sex: Male
  Weight: 68.1 kg

DRUGS (4)
  1. ACCUTANE [Suspect]
     Indication: ACNE
     Route: 065
     Dates: start: 198006, end: 1983
  2. ACCUTANE [Suspect]
     Route: 065
     Dates: start: 199902
  3. MOTRIN [Concomitant]
  4. ASPIRIN [Concomitant]

REACTIONS (9)
  - Intestinal obstruction [Unknown]
  - Enterocutaneous fistula [Unknown]
  - Abdominal abscess [Recovered/Resolved]
  - Crohn^s disease [Unknown]
  - Inflammatory bowel disease [Unknown]
  - Intestinal haemorrhage [Unknown]
  - Injury [Unknown]
  - Depression [Not Recovered/Not Resolved]
  - Irritable bowel syndrome [Unknown]
